FAERS Safety Report 8861958 (Version 2)
Quarter: 2012Q4

REPORT INFORMATION
  Report Type: 
  Country: US (occurrence: US)
  Receive Date: 20121025
  Receipt Date: 20121128
  Transmission Date: 20130627
  Serious: No
  Sender: FDA-Public Use
  Company Number: US-009507513-1210USA006364

PATIENT
  Age: 37 Year
  Sex: Male
  Weight: 113.38 kg

DRUGS (5)
  1. PEGINTRON [Suspect]
     Dosage: 0.5 ml, qw, 150MCG/0.5ml
     Route: 058
  2. RIBAVIRIN [Suspect]
     Dosage: UNK
     Route: 048
  3. TELAPREVIR [Suspect]
  4. LITHIUM CARBONATE [Concomitant]
     Dosage: ER
     Route: 048
  5. BENADRYL [Concomitant]
     Dosage: UNK
     Route: 048

REACTIONS (5)
  - Haemorrhoids [Unknown]
  - Weight decreased [Unknown]
  - Diarrhoea [Unknown]
  - Abdominal discomfort [Unknown]
  - Diarrhoea [Unknown]
